FAERS Safety Report 7355590-6 (Version None)
Quarter: 2011Q1

REPORT INFORMATION
  Report Type: 
  Country: None (occurrence: None)
  Receive Date: 20110316
  Receipt Date: 20110307
  Transmission Date: 20110831
  Serious: Yes (Hospitalization)
  Sender: FDA-Public Use
  Company Number: B0704244A

PATIENT
  Age: 42 Year
  Sex: Female

DRUGS (2)
  1. ARIXTRA [Suspect]
     Indication: DEEP VEIN THROMBOSIS
     Route: 065
     Dates: start: 20110113, end: 20110124
  2. PREVISCAN [Suspect]
     Indication: DEEP VEIN THROMBOSIS
     Dosage: 1.25UNIT PER DAY
     Route: 065
     Dates: start: 20110114

REACTIONS (9)
  - HEADACHE [None]
  - C-REACTIVE PROTEIN INCREASED [None]
  - MYALGIA [None]
  - RASH MACULO-PAPULAR [None]
  - HYPERTHERMIA [None]
  - RASH SCARLATINIFORM [None]
  - INFLUENZA LIKE ILLNESS [None]
  - CYTOMEGALOVIRUS INFECTION [None]
  - COUGH [None]
